FAERS Safety Report 8966751 (Version 2)
Quarter: 2013Q3

REPORT INFORMATION
  Report Type: Spontaneous
  Country: GB (occurrence: GB)
  Receive Date: 20121214
  Receipt Date: 20130814
  Transmission Date: 20140515
  Serious: Yes (Other)
  Sender: FDA-Public Use
  Company Number: GB-009507513-1212GBR005344

PATIENT
  Age: 17 Month
  Sex: 0

DRUGS (2)
  1. ROCURONIUM BROMIDE [Suspect]
     Indication: MAINTENANCE OF ANAESTHESIA
  2. KETAMINE HYDROCHLORIDE [Suspect]
     Indication: INDUCTION AND MAINTENANCE OF ANAESTHESIA

REACTIONS (1)
  - Cardiac arrest [Unknown]
